FAERS Safety Report 4908542-7 (Version None)
Quarter: 2006Q1

REPORT INFORMATION
  Report Type: 
  Country: None (occurrence: None)
  Receive Date: 20060210
  Receipt Date: 20050823
  Transmission Date: 20060701
  Serious: No
  Sender: FDA-Public Use
  Company Number: US-GLAXOSMITHKLINE-A0571428A

PATIENT
  Age: 38 Year
  Sex: Female

DRUGS (3)
  1. PAXIL CR [Suspect]
     Dosage: 12.5MG PER DAY
     Route: 048
     Dates: start: 20050822
  2. WELLBUTRIN XL [Suspect]
     Indication: ANXIETY DISORDER
     Route: 048
     Dates: start: 20050817, end: 20050818
  3. ZOLOFT [Concomitant]

REACTIONS (7)
  - AGITATION [None]
  - ANOREXIA [None]
  - BURNING SENSATION [None]
  - FATIGUE [None]
  - HEADACHE [None]
  - PAIN IN EXTREMITY [None]
  - SOMNOLENCE [None]
